FAERS Safety Report 17030510 (Version 1)
Quarter: 2019Q4

REPORT INFORMATION
  Report Type: Spontaneous
  Country: US (occurrence: US)
  Receive Date: 20191114
  Receipt Date: 20191114
  Transmission Date: 20200122
  Serious: No
  Sender: FDA-Public Use
  Company Number: US-ALLERGAN-1930033US

PATIENT
  Sex: Female

DRUGS (2)
  1. COMBIGAN [Suspect]
     Active Substance: BRIMONIDINE TARTRATE\TIMOLOL MALEATE
     Dosage: ACTUAL: MORE THAN 2 GTT, BID DUE TO BOTTLE TIP TOO LARGE
     Route: 047
     Dates: start: 2017
  2. COMBIGAN [Suspect]
     Active Substance: BRIMONIDINE TARTRATE\TIMOLOL MALEATE
     Indication: GLAUCOMA
     Dosage: ACTUAL: MORE THAN 2 GTT, BID DUE TO BOTTLE TIP TOO LARGE
     Route: 047
     Dates: start: 2017

REACTIONS (4)
  - Incorrect dose administered by product [Unknown]
  - Accidental exposure to product [Unknown]
  - Somnolence [Not Recovered/Not Resolved]
  - Product dropper issue [Unknown]

NARRATIVE: CASE EVENT DATE: 2017
